FAERS Safety Report 9482482 (Version 2)
Quarter: 2013Q3

REPORT INFORMATION
  Report Type: Spontaneous
  Country: ES (occurrence: ES)
  Receive Date: 20130828
  Receipt Date: 20130909
  Transmission Date: 20140515
  Serious: Yes (Other)
  Sender: FDA-Public Use
  Company Number: PHHY2013ES093145

PATIENT
  Age: 68 Year
  Sex: Male

DRUGS (5)
  1. METFORMIN SANDOZ [Suspect]
     Dosage: UNK
     Route: 048
     Dates: start: 20130725
  2. ACOVIL [Concomitant]
     Dosage: UNK
     Route: 048
     Dates: start: 20130725
  3. COROPRES [Concomitant]
     Dosage: UNK
     Route: 048
     Dates: start: 20130725
  4. SIMVASTATIN TEVA RIMAFAR [Concomitant]
     Dosage: UNK
     Route: 048
     Dates: start: 20130725
  5. FLUTICASONE PROPIONATE W/SALMETEROL XINAFOATE [Concomitant]
     Indication: EMPHYSEMA
     Dosage: UNK UKN, UNK
     Dates: start: 2010, end: 20130729

REACTIONS (3)
  - Angioedema [Recovered/Resolved]
  - Anaphylactic shock [Recovered/Resolved]
  - Lip swelling [Recovered/Resolved]
